FAERS Safety Report 8087821-1 (Version None)
Quarter: 2012Q1

REPORT INFORMATION
  Report Type: 
  Country: None (occurrence: None)
  Receive Date: 20120128
  Receipt Date: 20110606
  Transmission Date: 20120608
  Serious: No
  Sender: FDA-Public Use
  Company Number: US-ABBOTT-11P-163-0730584-00

PATIENT
  Age: 61 Year
  Sex: Male

DRUGS (3)
  1. UNKNOWN MEDICATION [Concomitant]
     Indication: HYPERTENSION
  2. HUMIRA [Suspect]
     Indication: PSORIASIS
     Dates: start: 20090101
  3. FOLIC ACID [Concomitant]
     Indication: PROPHYLAXIS
     Dates: start: 20110101

REACTIONS (4)
  - ARTHRALGIA [None]
  - PSORIASIS [None]
  - JOINT RANGE OF MOTION DECREASED [None]
  - GAIT DISTURBANCE [None]
